FAERS Safety Report 7537107-6 (Version None)
Quarter: 2011Q2

REPORT INFORMATION
  Report Type: 
  Country: None (occurrence: None)
  Receive Date: 20110609
  Receipt Date: 20110530
  Transmission Date: 20111010
  Serious: Yes (Other)
  Sender: FDA-Public Use
  Company Number: PHHY2010DE75260

PATIENT
  Sex: Female

DRUGS (4)
  1. CLOZAPINE [Suspect]
     Indication: PSYCHOTIC DISORDER
     Dosage: 600 MG, QD
     Route: 048
     Dates: start: 20091012
  2. PIPAMPERONE [Concomitant]
     Indication: SCHIZOPHRENIA
     Dosage: 80 MG, UNK
     Route: 048
     Dates: start: 20100617
  3. CLOZAPINE [Suspect]
     Indication: SCHIZOPHRENIA
  4. AMISULPRIDE [Concomitant]
     Indication: SCHIZOPHRENIA
     Dosage: 400 MG, UNK
     Route: 048
     Dates: start: 20101229

REACTIONS (3)
  - PANIC ATTACK [None]
  - CHOKING [None]
  - DYSPNOEA [None]
